FAERS Safety Report 5084536-9 (Version None)
Quarter: 2006Q3

REPORT INFORMATION
  Report Type: 
  Country: None (occurrence: None)
  Receive Date: 20060821
  Receipt Date: 20010724
  Transmission Date: 20061208
  Serious: Yes (Other)
  Sender: FDA-Public Use
  Company Number: US-MERCK-01072369

PATIENT
  Age: 62 Year
  Sex: Female

DRUGS (11)
  1. FOSAMAX [Suspect]
     Indication: OSTEOPOROSIS
     Route: 048
     Dates: start: 20010619
  2. TENORMIN [Concomitant]
     Route: 065
  3. NORVASC [Concomitant]
     Route: 065
  4. GLUCOTROL [Concomitant]
     Route: 065
  5. ZOCOR [Concomitant]
     Route: 048
  6. ISOSORBIDE [Concomitant]
     Route: 065
  7. HYDROCHLOROTHIAZIDE [Concomitant]
     Route: 065
  8. METFORMIN [Concomitant]
     Route: 065
  9. CLIMARA [Concomitant]
     Route: 065
  10. ESTROGENS (UNSPECIFIED) [Concomitant]
     Route: 065
  11. MOBILIN [Concomitant]
     Route: 065

REACTIONS (8)
  - ARTHRALGIA [None]
  - BACK PAIN [None]
  - CEREBROVASCULAR ACCIDENT [None]
  - CHEST PAIN [None]
  - FLATULENCE [None]
  - HEADACHE [None]
  - NAUSEA [None]
  - PYREXIA [None]
